FAERS Safety Report 18273115 (Version 1)
Quarter: 2020Q3

REPORT INFORMATION
  Report Type: Other
  Country: NL (occurrence: NL)
  Receive Date: 20200916
  Receipt Date: 20200916
  Transmission Date: 20201103
  Serious: Yes (Other)
  Sender: FDA-Public Use
  Company Number: NL-APOTEX-2020AP017743

PATIENT
  Age: 66 Year
  Sex: Female

DRUGS (3)
  1. RHODIOLA ROSEA [Interacting]
     Active Substance: HERBALS
     Indication: DEPRESSION
     Dosage: 500 MG, BID, (2XPER DAY)
     Route: 065
     Dates: start: 202006, end: 20200814
  2. RHODIOLA ROSEA [Interacting]
     Active Substance: HERBALS
     Dosage: UNK
     Route: 065
  3. PAROXETINE TABLET [Suspect]
     Active Substance: PAROXETINE
     Indication: PRODUCT USED FOR UNKNOWN INDICATION
     Dosage: 20 MG
     Route: 065

REACTIONS (4)
  - Suicidal ideation [Recovering/Resolving]
  - Tremor [Recovering/Resolving]
  - Nausea [Recovering/Resolving]
  - Drug interaction [Recovering/Resolving]

NARRATIVE: CASE EVENT DATE: 20200703
